FAERS Safety Report 6402672-9 (Version None)
Quarter: 2009Q4

REPORT INFORMATION
  Report Type: 
  Country: None (occurrence: None)
  Receive Date: 20091009
  Receipt Date: 20090930
  Transmission Date: 20100525
  Serious: Yes (Other)
  Sender: FDA-Public Use
  Company Number: ADR34152009

PATIENT
  Age: 62 Year
  Sex: Female

DRUGS (3)
  1. CIPROFLOXACIN [Suspect]
     Indication: SINUSITIS
     Dosage: 500 MG, ORAL
     Route: 048
     Dates: start: 20070616, end: 20070622
  2. ALENDRONATE SODIUM [Concomitant]
  3. LEVOTHYROXINE SODIUM [Concomitant]

REACTIONS (4)
  - OEDEMA MOUTH [None]
  - ORAL PAIN [None]
  - STOMATITIS [None]
  - THROAT IRRITATION [None]
